FAERS Safety Report 25548422 (Version 1)
Quarter: 2025Q3

REPORT INFORMATION
  Report Type: Spontaneous
  Country: IN (occurrence: IN)
  Receive Date: 20250714
  Receipt Date: 20250714
  Transmission Date: 20251021
  Serious: Yes (Death)
  Sender: Steriscience PTE
  Company Number: IN-STERISCIENCE B.V.-2025-ST-001301

PATIENT
  Age: 48 Year
  Sex: Male

DRUGS (7)
  1. METHYLENE BLUE [Suspect]
     Active Substance: METHYLENE BLUE
     Indication: Methaemoglobinaemia
     Route: 042
  2. METHYLENE BLUE [Suspect]
     Active Substance: METHYLENE BLUE
     Indication: Chemical poisoning
     Route: 042
  3. NOREPINEPHRINE BITARTRATE [Suspect]
     Active Substance: NOREPINEPHRINE BITARTRATE
     Indication: Methaemoglobinaemia
     Route: 065
  4. NOREPINEPHRINE BITARTRATE [Suspect]
     Active Substance: NOREPINEPHRINE BITARTRATE
     Indication: Chemical poisoning
  5. VITAMIN C [Suspect]
     Active Substance: ASCORBIC ACID
     Indication: Methaemoglobinaemia
     Route: 065
  6. VITAMIN C [Suspect]
     Active Substance: ASCORBIC ACID
     Indication: Chemical poisoning
  7. Nitrobenzene [Concomitant]
     Indication: Suicide attempt
     Route: 065

REACTIONS (1)
  - Drug ineffective [Fatal]
